FAERS Safety Report 11159374 (Version 1)
Quarter: 2015Q2

REPORT INFORMATION
  Report Type: Spontaneous
  Country: US (occurrence: None)
  Receive Date: 20150602
  Receipt Date: 20150602
  Transmission Date: 20150821
  Serious: Yes (Death, Life-Threatening, Hospitalization, Disabling)
  Sender: FDA-Public Use
  Company Number: None

PATIENT
  Age: 56 Year
  Sex: Female

DRUGS (2)
  1. DILAUDID [Suspect]
     Active Substance: HYDROMORPHONE HYDROCHLORIDE
     Dosage: 1 MG PER MI AMP
     Route: 042
  2. ATIVAN [Suspect]
     Active Substance: LORAZEPAM
     Indication: ANXIETY
     Dosage: 1 MG TAB BY PILL 1 MG IV EVERY 4 HRS. 2 PILLS IV 2 MG PER ML INJECTION TEICE DAILY EVERY 4 HRS. PILLS BY MOUTH AND THEN FINAL INJECTION WAS DEADLY.
     Route: 042
     Dates: start: 2012, end: 2015

REACTIONS (9)
  - Respiratory disorder [None]
  - Death of relative [None]
  - Malaise [None]
  - Depression [None]
  - Cardiac failure [None]
  - Hepatic cirrhosis [None]
  - Condition aggravated [None]
  - Oedema peripheral [None]
  - Weight increased [None]

NARRATIVE: CASE EVENT DATE: 2012
